FAERS Safety Report 6116636-6 (Version None)
Quarter: 2009Q1

REPORT INFORMATION
  Report Type: 
  Country: None (occurrence: None)
  Receive Date: 20090314
  Receipt Date: 20081223
  Transmission Date: 20090719
  Serious: No
  Sender: FDA-Public Use
  Company Number: US-ABBOTT-08P-163-0494490-00

PATIENT
  Sex: Male
  Weight: 99.88 kg

DRUGS (3)
  1. HUMIRA [Suspect]
     Indication: CROHN'S DISEASE
     Route: 058
     Dates: start: 20081211, end: 20081211
  2. HUMIRA [Suspect]
  3. LEXAPRO [Concomitant]
     Indication: DEPRESSION
     Dosage: 20

REACTIONS (1)
  - INJECTION SITE IRRITATION [None]
